FAERS Safety Report 4362183-1 (Version None)
Quarter: 2004Q2

REPORT INFORMATION
  Report Type: 
  Country: None (occurrence: None)
  Receive Date: 20040517
  Receipt Date: 20040413
  Transmission Date: 20050107
  Serious: Yes (Hospitalization)
  Sender: FDA-Public Use
  Company Number: PERIO-2004-0029

PATIENT
  Age: 51 Year
  Sex: Female
  Weight: 82.5547 kg

DRUGS (5)
  1. PERIOSTAT [Suspect]
     Indication: OSTEOPENIA
     Dosage: 20 MG, BID, PER ORAL
     Route: 048
     Dates: start: 20030410
  2. CALCIUM 600 MG + VITAMIN D 200IU/WALGREENS [Suspect]
     Indication: OSTEOPENIA
     Dosage: BID, PER ORAL
     Route: 048
     Dates: start: 20030410
  3. LEVOXYL [Concomitant]
  4. ASPIRIN [Concomitant]
  5. TYLENOL [Concomitant]

REACTIONS (3)
  - DEATH OF RELATIVE [None]
  - HYPERTENSION [None]
  - STRESS SYMPTOMS [None]
